FAERS Safety Report 20131957 (Version 1)
Quarter: 2021Q4

REPORT INFORMATION
  Report Type: Spontaneous
  Country: US (occurrence: None)
  Receive Date: 20211130
  Receipt Date: 20211130
  Transmission Date: 20220303
  Serious: Yes (Hospitalization)
  Sender: FDA-Public Use
  Company Number: None

PATIENT
  Age: 86 Year
  Sex: Male
  Weight: 72 kg

DRUGS (15)
  1. ABIRATERONE [Suspect]
     Active Substance: ABIRATERONE
     Indication: Prostate cancer
     Dosage: FREQUENCY : 4 TIMES A DAY;?
     Route: 048
     Dates: start: 20210520, end: 20211130
  2. Atenolol 0.5mg [Concomitant]
  3. Eligard 40mg [Concomitant]
  4. FUROSEMIDE [Concomitant]
     Active Substance: FUROSEMIDE
  5. Klor-Con 10mEq [Concomitant]
  6. LISINOPRIL [Concomitant]
     Active Substance: LISINOPRIL
     Dates: end: 20211009
  7. VITAMINS [Concomitant]
     Active Substance: VITAMINS
  8. Pilocarpine HCl 0.5% [Concomitant]
  9. ROLAIDS [Concomitant]
     Active Substance: CALCIUM CARBONATE\MAGNESIUM HYDROXIDE
  10. SIMVASTATIN [Concomitant]
     Active Substance: SIMVASTATIN
  11. Timolol 0.25% [Concomitant]
  12. WARFARIN [Concomitant]
     Active Substance: WARFARIN
  13. PREDNISONE [Concomitant]
     Active Substance: PREDNISONE
     Dates: end: 20211130
  14. ZYTIGA [Concomitant]
     Active Substance: ABIRATERONE ACETATE
     Dates: end: 20210916
  15. SPIRONOLACTONE [Concomitant]
     Active Substance: SPIRONOLACTONE

REACTIONS (1)
  - Hospice care [None]

NARRATIVE: CASE EVENT DATE: 20211130
